FAERS Safety Report 11560944 (Version 1)
Quarter: 2015Q3

REPORT INFORMATION
  Report Type: Spontaneous
  Country: US (occurrence: US)
  Receive Date: 20150928
  Receipt Date: 20150928
  Transmission Date: 20151125
  Serious: Yes (Hospitalization, Other)
  Sender: FDA-Public Use
  Company Number: US-ELI_LILLY_AND_COMPANY-US201509007971

PATIENT
  Age: 17 Year
  Sex: Female

DRUGS (1)
  1. PROZAC [Suspect]
     Active Substance: FLUOXETINE HYDROCHLORIDE
     Indication: DEPRESSION
     Dosage: 20 MG, UNKNOWN
     Route: 065
     Dates: start: 200403

REACTIONS (7)
  - Urinary tract infection [Unknown]
  - Streptococcus test positive [Unknown]
  - Intentional overdose [Unknown]
  - Anaemia [Unknown]
  - Depression [Unknown]
  - Postpartum haemorrhage [Unknown]
  - Suicide attempt [Unknown]

NARRATIVE: CASE EVENT DATE: 20041011
